FAERS Safety Report 7103910-X (Version None)
Quarter: 2010Q4

REPORT INFORMATION
  Report Type: 
  Country: None (occurrence: None)
  Receive Date: 20101115
  Receipt Date: 20101109
  Transmission Date: 20110411
  Serious: Yes (Other)
  Sender: FDA-Public Use
  Company Number: US-PFIZER INC-2010144099

PATIENT
  Sex: Female
  Weight: 63 kg

DRUGS (10)
  1. CHANTIX [Suspect]
     Indication: SMOKING CESSATION THERAPY
     Dosage: UNK MG, UNK
     Route: 048
     Dates: start: 20100101
  2. DETROL LA [Concomitant]
     Indication: MICTURITION DISORDER
     Dosage: 4 MG, 1X/DAY
     Route: 048
  3. LIPITOR [Concomitant]
     Indication: BLOOD CHOLESTEROL INCREASED
     Dosage: 40 MG, 1X/DAY
     Route: 048
  4. EPITOL [Concomitant]
     Indication: BIPOLAR DISORDER
     Dosage: 200 MG, 2X/DAY
     Route: 048
  5. LISINOPRIL [Concomitant]
     Indication: BLOOD PRESSURE ABNORMAL
     Dosage: 40 MG, 1X/DAY
     Route: 048
  6. LEXAPRO [Concomitant]
     Dosage: 10 MG, 1X/DAY
     Route: 048
  7. PLAVIX [Concomitant]
     Dosage: 75 MG, 1X/DAY
     Route: 048
  8. METOPROLOL [Concomitant]
     Indication: BLOOD PRESSURE ABNORMAL
     Dosage: 100 MG, 1X/DAY
     Route: 048
  9. AMLODIPINE [Concomitant]
     Dosage: 10 MG, 1X/DAY
     Route: 048
  10. ACETYLSALICYLIC ACID [Concomitant]
     Indication: CARDIAC DISORDER
     Dosage: 81 MG, 1X/DAY
     Route: 048

REACTIONS (1)
  - WEIGHT DECREASED [None]
